FAERS Safety Report 7359328-8 (Version None)
Quarter: 2011Q1

REPORT INFORMATION
  Report Type: 
  Country: None (occurrence: None)
  Receive Date: 20110317
  Receipt Date: 20090909
  Transmission Date: 20110831
  Serious: No
  Sender: FDA-Public Use
  Company Number: US-PFIZER INC-2009248192

PATIENT
  Sex: Female

DRUGS (3)
  1. AMLODIPINE BESYLATE [Suspect]
  2. ALEVE [Concomitant]
  3. NORVASC [Suspect]

REACTIONS (4)
  - RASH [None]
  - PRURITUS [None]
  - URTICARIA [None]
  - OEDEMA [None]
